FAERS Safety Report 10064125 (Version 3)
Quarter: 2014Q2

REPORT INFORMATION
  Report Type: Spontaneous
  Country: US (occurrence: US)
  Receive Date: 20140408
  Receipt Date: 20140620
  Transmission Date: 20141212
  Serious: Yes (Death, Hospitalization)
  Sender: FDA-Public Use
  Company Number: US-PFIZER INC-2014094028

PATIENT
  Age: 63 Year
  Sex: Male
  Weight: 84.81 kg

DRUGS (1)
  1. SUTENT [Suspect]
     Indication: RENAL CANCER
     Dosage: 50 MG, CYCLIC (DAILY 28 DAYS ON 2 WEEKS OFF REPEAT)
     Route: 048
     Dates: start: 20140226

REACTIONS (4)
  - Disease progression [Fatal]
  - Renal cancer [Fatal]
  - Convulsion [Unknown]
  - Dysphagia [Unknown]
